FAERS Safety Report 5570861-1 (Version None)
Quarter: 2007Q4

REPORT INFORMATION
  Report Type: 
  Country: None (occurrence: None)
  Receive Date: 20071221
  Receipt Date: 20071212
  Transmission Date: 20080405
  Serious: Yes (Other)
  Sender: FDA-Public Use
  Company Number: FR-ASTRAZENECA-2007CG01768

PATIENT
  Age: 1000 Month
  Sex: Female

DRUGS (9)
  1. CRESTOR [Suspect]
     Route: 048
     Dates: start: 20070630, end: 20071001
  2. ACLASTA [Suspect]
     Indication: OSTEITIS DEFORMANS
     Route: 042
     Dates: start: 20070825, end: 20070825
  3. CACIT VITAMINE D3 [Suspect]
     Dates: start: 20070821, end: 20070910
  4. CALTRATE VITAMINE D3 [Concomitant]
     Route: 048
     Dates: start: 20070910
  5. TOCOPHEROL CONCENTRATE CAP [Concomitant]
     Route: 048
     Dates: start: 20070910
  6. LEVOTHYROX [Concomitant]
  7. DAFALGAN [Concomitant]
  8. SPASFON [Concomitant]
  9. MAGNE B6 [Concomitant]

REACTIONS (1)
  - CHEST X-RAY ABNORMAL [None]
